FAERS Safety Report 12736844 (Version 1)
Quarter: 2016Q3

REPORT INFORMATION
  Report Type: Spontaneous
  Country: IT (occurrence: IT)
  Receive Date: 20160912
  Receipt Date: 20160912
  Transmission Date: 20161109
  Serious: Yes (Other)
  Sender: FDA-Public Use
  Company Number: IT-SA-2016SA164749

PATIENT
  Age: 88 Year
  Sex: Male

DRUGS (10)
  1. FERRO-GRAD [Concomitant]
     Active Substance: FERROUS SULFATE
     Dosage: STRENGTH: 105 MG
     Route: 048
  2. EUTIROX [Concomitant]
     Active Substance: LEVOTHYROXINE SODIUM
     Dosage: STRENGTH: 125 MCG
     Route: 048
  3. LIBRADIN [Concomitant]
     Active Substance: BARNIDIPINE HYDROCHLORIDE
     Dosage: FORM:MODIFIED RELEASE HARD CAPSULE DOSE:1 UNIT(S)
     Route: 048
  4. CARDIOASPIRIN [Concomitant]
     Active Substance: ASPIRIN
     Dosage: STRENGTH: 100 MG
     Route: 048
  5. TRIATEC [Concomitant]
     Active Substance: RAMIPRIL
     Dosage: DOSE:1 UNIT(S)
     Route: 048
  6. AMARYL [Suspect]
     Active Substance: GLIMEPIRIDE
     Indication: DIABETES MELLITUS
     Route: 048
     Dates: start: 20160101, end: 20160613
  7. CLEXANE [Concomitant]
     Active Substance: ENOXAPARIN SODIUM
     Route: 058
  8. LANSOX [Concomitant]
     Active Substance: LANSOPRAZOLE
     Route: 048
  9. STILNOX [Concomitant]
     Active Substance: ZOLPIDEM TARTRATE
     Dosage: DOSE:0.5 UNIT(S)
     Route: 048
  10. EUTIROX [Concomitant]
     Active Substance: LEVOTHYROXINE SODIUM
     Dosage: STRENGTH: 100 MCG
     Route: 048

REACTIONS (4)
  - Vomiting [Recovering/Resolving]
  - Hypoglycaemia [Recovering/Resolving]
  - Decreased appetite [Recovering/Resolving]
  - Confusional state [Recovering/Resolving]

NARRATIVE: CASE EVENT DATE: 20160613
